FAERS Safety Report 6181066-8 (Version None)
Quarter: 2009Q2

REPORT INFORMATION
  Report Type: 
  Country: None (occurrence: None)
  Receive Date: 20090506
  Receipt Date: 20090427
  Transmission Date: 20091009
  Serious: Yes (Hospitalization, Other)
  Sender: FDA-Public Use
  Company Number: CZ-BAXTER-2009BH007344

PATIENT
  Sex: Female

DRUGS (1)
  1. PLASMA-LYTE 148 AND DEXTROSE 5% IN PLASTIC CONTAINER [Suspect]
     Indication: SUPPLEMENTATION THERAPY
     Route: 042
     Dates: start: 20090421, end: 20090421

REACTIONS (7)
  - C-REACTIVE PROTEIN INCREASED [None]
  - HAEMODYNAMIC INSTABILITY [None]
  - HYPOTENSION [None]
  - PRODUCT CONTAMINATION MICROBIAL [None]
  - RESPIRATORY DISORDER [None]
  - TACHYCARDIA [None]
  - THROMBOCYTOPENIA [None]
